FAERS Safety Report 11301209 (Version 5)
Quarter: 2015Q4

REPORT INFORMATION
  Report Type: Spontaneous
  Country: US (occurrence: None)
  Receive Date: 20150722
  Receipt Date: 20151216
  Transmission Date: 20160304
  Serious: Yes (Hospitalization, Other)
  Sender: FDA-Public Use
  Company Number: ADR-2015-01369

PATIENT
  Age: 32 Year
  Sex: Male

DRUGS (2)
  1. LIORESAL [Suspect]
     Active Substance: BACLOFEN
     Indication: MUSCLE SPASTICITY
     Dosage: 440-485 MCG/DAY
  2. LIORESAL [Suspect]
     Active Substance: BACLOFEN
     Dosage: 25.0 MCG/DAY

REACTIONS (22)
  - Post lumbar puncture syndrome [None]
  - Vision blurred [None]
  - Accident [None]
  - Malaise [None]
  - Lordosis [None]
  - Pyrexia [None]
  - Cerebrospinal fluid leakage [None]
  - Medical device site bruise [None]
  - Mental status changes [None]
  - Dysgeusia [None]
  - Dizziness [None]
  - Abnormal behaviour [None]
  - Muscle tightness [None]
  - Hypotonia [None]
  - Intervertebral disc disorder [None]
  - Hiatus hernia [None]
  - Meningitis [None]
  - Muscle spasticity [None]
  - Confusional state [None]
  - Urinary incontinence [None]
  - Muscle spasms [None]
  - Anxiety [None]
